FAERS Safety Report 11672344 (Version 1)
Quarter: 2015Q4

REPORT INFORMATION
  Report Type: Spontaneous
  Country: US (occurrence: US)
  Receive Date: 20151027
  Receipt Date: 20151027
  Transmission Date: 20160304
  Serious: No
  Sender: FDA-Public Use
  Company Number: US-ELI_LILLY_AND_COMPANY-US201006005945

PATIENT
  Sex: Female

DRUGS (1)
  1. FORTEO [Suspect]
     Active Substance: TERIPARATIDE
     Indication: OSTEOPOROSIS
     Dosage: UNK, UNKNOWN
     Dates: start: 20100614

REACTIONS (5)
  - Nervousness [Not Recovered/Not Resolved]
  - Feeling jittery [Unknown]
  - Feeling abnormal [Unknown]
  - Speech disorder [Unknown]
  - Euphoric mood [Unknown]

NARRATIVE: CASE EVENT DATE: 20100614
